FAERS Safety Report 6508889-7 (Version None)
Quarter: 2009Q4

REPORT INFORMATION
  Report Type: 
  Country: None (occurrence: None)
  Receive Date: 20091221
  Receipt Date: 20090817
  Transmission Date: 20100525
  Serious: No
  Sender: FDA-Public Use
  Company Number: US-ASTRAZENECA-2009SE08496

PATIENT
  Age: 23538 Day
  Sex: Male
  Weight: 79.4 kg

DRUGS (2)
  1. CRESTOR [Suspect]
     Route: 048
  2. OMEPRAZOLE [Concomitant]

REACTIONS (4)
  - ABDOMINAL PAIN [None]
  - ARTHRALGIA [None]
  - BACK PAIN [None]
  - DIZZINESS [None]
